FAERS Safety Report 9758844 (Version 1)
Quarter: 2013Q4

REPORT INFORMATION
  Report Type: Spontaneous
  Country: US (occurrence: None)
  Receive Date: 20131213
  Receipt Date: 20131213
  Transmission Date: 20140711
  Serious: Yes (Hospitalization)
  Sender: FDA-Public Use
  Company Number: None

PATIENT
  Age: 64 Year
  Sex: Female

DRUGS (2)
  1. ENBREL 50MG AMGEN [Suspect]
     Dates: start: 20120531
  2. METHOTREXATE [Suspect]
     Dates: start: 20120907, end: 20131122

REACTIONS (2)
  - Pneumonia viral [None]
  - Lung disorder [None]
